FAERS Safety Report 4415845-1 (Version None)
Quarter: 2004Q3

REPORT INFORMATION
  Report Type: 
  Country: None (occurrence: None)
  Receive Date: 20040730
  Receipt Date: 20040716
  Transmission Date: 20050211
  Serious: Yes (Hospitalization)
  Sender: FDA-Public Use
  Company Number: 2004207273FR

PATIENT
  Age: 78 Year
  Sex: Female

DRUGS (10)
  1. CLINDAMYCIN [Suspect]
     Indication: SEPSIS
     Dosage: IV
     Route: 042
     Dates: start: 20040201, end: 20040223
  2. CLINDAMYCIN [Suspect]
     Indication: SEPSIS
     Dosage: IV
     Route: 042
     Dates: start: 20040127
  3. RIFAMPICIN [Suspect]
     Indication: SEPSIS
     Dosage: IV
     Route: 042
     Dates: start: 20040115, end: 20040223
  4. OMEPRAZOLE [Suspect]
     Indication: STRESS ULCER
     Dosage: SEE IMAGE
     Route: 042
     Dates: start: 20040211, end: 20040225
  5. OMEPRAZOLE [Suspect]
     Indication: STRESS ULCER
     Dosage: SEE IMAGE
     Route: 042
     Dates: start: 20040306
  6. CORDARONE [Concomitant]
  7. CALCIPARINE [Concomitant]
  8. VANCOMYCIN HCL [Concomitant]
  9. GENTAMICIN SULFATE [Concomitant]
  10. IZILOX [Concomitant]

REACTIONS (30)
  - ATRIAL FIBRILLATION [None]
  - C-REACTIVE PROTEIN INCREASED [None]
  - COMA [None]
  - CONFUSIONAL STATE [None]
  - CSF CELL COUNT INCREASED [None]
  - CSF LYMPHOCYTE COUNT INCREASED [None]
  - CSF PROTEIN INCREASED [None]
  - CYANOSIS [None]
  - DISORIENTATION [None]
  - DRUG INTERACTION [None]
  - DUODENAL ULCER [None]
  - ENTEROBACTER INFECTION [None]
  - FLUID RETENTION [None]
  - GASTRIC HAEMORRHAGE [None]
  - GASTROINTESTINAL DISORDER [None]
  - HAEMOGLOBIN DECREASED [None]
  - HYPOTENSION [None]
  - MELAENA [None]
  - MYOCLONUS [None]
  - OVERDOSE [None]
  - PLATELET COUNT DECREASED [None]
  - PYREXIA [None]
  - RASH [None]
  - RENAL IMPAIRMENT [None]
  - SODIUM RETENTION [None]
  - SOMNOLENCE [None]
  - STATUS EPILEPTICUS [None]
  - THERAPY NON-RESPONDER [None]
  - THROMBOSIS [None]
  - URINARY TRACT INFECTION [None]
